FAERS Safety Report 4511326-5 (Version None)
Quarter: 2004Q4

REPORT INFORMATION
  Report Type: 
  Country: None (occurrence: None)
  Receive Date: 20041129
  Receipt Date: 20041116
  Transmission Date: 20050328
  Serious: Yes (Hospitalization, Other)
  Sender: FDA-Public Use
  Company Number: DE-JNJFOC-20041104294

PATIENT
  Sex: Female

DRUGS (2)
  1. DURAGESIC [Suspect]
     Route: 062
  2. NOVALGIN [Concomitant]
     Indication: PAIN
     Route: 065

REACTIONS (3)
  - DIFFICULTY IN WALKING [None]
  - MALIGNANT NEOPLASM PROGRESSION [None]
  - MOVEMENT DISORDER [None]
